FAERS Safety Report 14458767 (Version 2)
Quarter: 2018Q1

REPORT INFORMATION
  Report Type: Spontaneous
  Country: JP (occurrence: JP)
  Receive Date: 20180130
  Receipt Date: 20180301
  Transmission Date: 20180509
  Serious: Yes (Hospitalization)
  Sender: FDA-Public Use
  Company Number: JP-BAYER-2018-014194

PATIENT
  Sex: Female

DRUGS (7)
  1. LYRICA [Concomitant]
     Active Substance: PREGABALIN
  2. TEGRETOL [Concomitant]
     Active Substance: CARBAMAZEPINE
  3. METHYCOBAL [Concomitant]
     Active Substance: METHYLCOBALAMIN
  4. REBAMIPIDE [Concomitant]
     Active Substance: REBAMIPIDE
  5. SLOW-K [Concomitant]
     Active Substance: POTASSIUM CHLORIDE
     Indication: HYPOKALAEMIA
  6. LOXONIN [Concomitant]
     Active Substance: LOXOPROFEN SODIUM
  7. BETAFERON [Suspect]
     Active Substance: INTERFERON BETA-1B
     Dosage: 8 MIU, QOD
     Route: 058
     Dates: start: 20110901

REACTIONS (3)
  - Trigeminal neuralgia [Recovered/Resolved]
  - Blood potassium decreased [Recovered/Resolved]
  - Eating disorder [Recovered/Resolved]

NARRATIVE: CASE EVENT DATE: 20180110
